FAERS Safety Report 11071367 (Version 1)
Quarter: 2015Q2

REPORT INFORMATION
  Report Type: Spontaneous
  Country: US (occurrence: None)
  Receive Date: 20150427
  Receipt Date: 20150427
  Transmission Date: 20150821
  Serious: Yes (Disabling)
  Sender: FDA-Public Use
  Company Number: None

PATIENT
  Age: 55 Year
  Sex: Male
  Weight: 83.92 kg

DRUGS (11)
  1. TESTOSTERONE. [Concomitant]
     Active Substance: TESTOSTERONE
  2. COREG [Concomitant]
     Active Substance: CARVEDILOL
  3. MULTI-VITAMINS [Concomitant]
  4. LYRICA [Concomitant]
     Active Substance: PREGABALIN
  5. LISINOPRIL. [Concomitant]
     Active Substance: LISINOPRIL
  6. BACLOFEN 10 MG TABLETS [Suspect]
     Active Substance: BACLOFEN
     Indication: MULTIPLE SCLEROSIS
     Dosage: 5 TIMES PER DAY
     Dates: start: 20150420, end: 20150423
  7. DIAZEPAM. [Concomitant]
     Active Substance: DIAZEPAM
  8. BACLOFEN 10 MG TABLETS [Suspect]
     Active Substance: BACLOFEN
     Indication: MUSCLE SPASMS
     Dosage: 5 TIMES PER DAY
     Dates: start: 20150420, end: 20150423
  9. CYMBALTA [Concomitant]
     Active Substance: DULOXETINE HYDROCHLORIDE
  10. LEVOTHYROXINE [Concomitant]
     Active Substance: LEVOTHYROXINE
  11. BABY ASPIRIN [Concomitant]
     Active Substance: ASPIRIN

REACTIONS (6)
  - Product substitution issue [None]
  - Muscle spasms [None]
  - Product quality issue [None]
  - Drug ineffective [None]
  - Musculoskeletal stiffness [None]
  - Gait disturbance [None]

NARRATIVE: CASE EVENT DATE: 20150423
